FAERS Safety Report 25274653 (Version 1)
Quarter: 2025Q2

REPORT INFORMATION
  Report Type: Spontaneous
  Country: US (occurrence: None)
  Receive Date: 20250506
  Receipt Date: 20250506
  Transmission Date: 20250717
  Serious: Yes (Other)
  Sender: FDA-CTU
  Company Number: None

PATIENT
  Age: 67 Year
  Sex: Female

DRUGS (22)
  1. DASATINIB [Suspect]
     Active Substance: DASATINIB
     Indication: Chronic myeloid leukaemia
     Dosage: FREQUENCY : DAILY;?
     Route: 048
     Dates: start: 20220512, end: 20250428
  2. IVERMECTIN [Concomitant]
     Active Substance: IVERMECTIN
  3. MOXIFLOXACIN [Concomitant]
     Active Substance: MOXIFLOXACIN
  4. TRAMADOL [Concomitant]
     Active Substance: TRAMADOL
  5. DOXYCYCLINE [Concomitant]
     Active Substance: DOXYCYCLINE
  6. EZETIMIBE [Concomitant]
     Active Substance: EZETIMIBE
  7. RYBELSUS [Concomitant]
     Active Substance: SEMAGLUTIDE
  8. LABETALOL [Concomitant]
     Active Substance: LABETALOL
  9. ENTRESTO [Concomitant]
     Active Substance: SACUBITRIL\VALSARTAN
  10. AIRSUPRA [Concomitant]
     Active Substance: ALBUTEROL SULFATE\BUDESONIDE
  11. TRELEGY ELLIPTA [Concomitant]
     Active Substance: FLUTICASONE FUROATE\UMECLIDINIUM BROMIDE\VILANTEROL TRIFENATATE
  12. BISOPROLOL [Concomitant]
     Active Substance: BISOPROLOL
  13. DILTIAZEM [Concomitant]
     Active Substance: DILTIAZEM
  14. FUROSEMIDE [Concomitant]
     Active Substance: FUROSEMIDE
  15. ALLOPURINOL [Concomitant]
     Active Substance: ALLOPURINOL
  16. ISOSORBIDE [Concomitant]
     Active Substance: ISOSORBIDE
  17. HYDRALAZINE [Concomitant]
     Active Substance: HYDRALAZINE HYDROCHLORIDE
  18. CLONIDINE [Concomitant]
     Active Substance: CLONIDINE
  19. CANDESARTAN [Concomitant]
     Active Substance: CANDESARTAN
  20. DYAZIDE [Concomitant]
     Active Substance: HYDROCHLOROTHIAZIDE\TRIAMTERENE
  21. GABAPENTIN [Concomitant]
     Active Substance: GABAPENTIN
  22. FIORICET [Concomitant]
     Active Substance: ACETAMINOPHEN\BUTALBITAL\CAFFEINE

REACTIONS (2)
  - Pericardial effusion [None]
  - Pleural effusion [None]

NARRATIVE: CASE EVENT DATE: 20250325
